FAERS Safety Report 6258585-9 (Version None)
Quarter: 2009Q3

REPORT INFORMATION
  Report Type: 
  Country: None (occurrence: None)
  Receive Date: 20090707
  Receipt Date: 20090623
  Transmission Date: 20100115
  Serious: Yes (Hospitalization)
  Sender: FDA-Public Use
  Company Number: FR-GENENTECH-282550

PATIENT
  Sex: Male

DRUGS (6)
  1. RITUXIMAB [Suspect]
     Indication: B-CELL SMALL LYMPHOCYTIC LYMPHOMA
     Dosage: 860 MG, QD
     Route: 042
     Dates: start: 20080421
  2. RITUXIMAB [Suspect]
     Dosage: 860 MG, QD
     Dates: start: 20080505
  3. FLUDARABINE PHOSPHATE [Suspect]
     Indication: CHRONIC LYMPHOCYTIC LEUKAEMIA
     Dosage: 70 MG, QD
     Route: 002
     Dates: start: 20080408
  4. FLUDARABINE PHOSPHATE [Suspect]
     Dosage: 50 MG, QD
     Dates: start: 20080514
  5. CYCLOPHOSPHAMIDE [Suspect]
     Indication: NEOPLASM MALIGNANT
     Dosage: 450 MG, UNK
     Route: 002
     Dates: start: 20080408
  6. CYCLOPHOSPHAMIDE [Suspect]
     Dosage: 300 MG, UNK
     Dates: start: 20080514

REACTIONS (1)
  - FEBRILE NEUTROPENIA [None]
